FAERS Safety Report 4968711-7 (Version None)
Quarter: 2006Q2

REPORT INFORMATION
  Report Type: 
  Country: None (occurrence: None)
  Receive Date: 20060411
  Receipt Date: 20060331
  Transmission Date: 20061013
  Serious: Yes (Other)
  Sender: FDA-Public Use
  Company Number: PHEH2006US04291

PATIENT
  Age: 70 Year
  Sex: Female

DRUGS (3)
  1. ZOMETA [Suspect]
     Indication: NON-HODGKIN'S LYMPHOMA
     Dosage: 4 MG, QMO
     Dates: start: 20050501, end: 20050725
  2. ZOMETA [Suspect]
     Dosage: 4 MG MONTHLY
     Dates: start: 20021120, end: 20050501
  3. RITUXAN [Concomitant]
     Dosage: WEEKLY X4 Q6MOS
     Dates: start: 20030101, end: 20040901

REACTIONS (15)
  - ALVEOLOPLASTY [None]
  - BONE DEBRIDEMENT [None]
  - BONE DISORDER [None]
  - BREATH ODOUR [None]
  - DIZZINESS [None]
  - DYSGEUSIA [None]
  - GINGIVAL SWELLING [None]
  - IMPAIRED HEALING [None]
  - ORAL PAIN [None]
  - OSTEONECROSIS [None]
  - PURULENT DISCHARGE [None]
  - SEQUESTRECTOMY [None]
  - TENDERNESS [None]
  - TOOTH ABSCESS [None]
  - TOOTH EXTRACTION [None]
